FAERS Safety Report 21356762 (Version 1)
Quarter: 2022Q3

REPORT INFORMATION
  Report Type: Spontaneous
  Country: US (occurrence: None)
  Receive Date: 20220920
  Receipt Date: 20220920
  Transmission Date: 20221026
  Serious: Yes (Hospitalization)
  Sender: FDA-Public Use
  Company Number: None

PATIENT
  Age: 64 Year
  Sex: Female
  Weight: 106.1 kg

DRUGS (25)
  1. CAPECITABINE [Suspect]
     Active Substance: CAPECITABINE
     Indication: Breast cancer female
     Dosage: FREQUENCY : TWICE A DAY;?
     Route: 048
     Dates: start: 20220728
  2. ATENOLOL [Concomitant]
     Active Substance: ATENOLOL
  3. ATORVASTATIN [Concomitant]
     Active Substance: ATORVASTATIN
  4. BETAMETHASONE [Concomitant]
     Active Substance: BETAMETHASONE
  5. CALCIUM [Concomitant]
     Active Substance: CALCIUM
  6. CLONIDINE [Concomitant]
     Active Substance: CLONIDINE
  7. COLACE [Concomitant]
     Active Substance: DOCUSATE SODIUM
  8. FIASP [Concomitant]
     Active Substance: INSULIN ASPART
  9. GLIMEPIRIDE [Concomitant]
     Active Substance: GLIMEPIRIDE
  10. HYDROXYZINE [Concomitant]
     Active Substance: HYDROXYZINE HYDROCHLORIDE
  11. POTASSIUM CHLORIDE [Concomitant]
     Active Substance: POTASSIUM CHLORIDE
  12. LASIX [Concomitant]
     Active Substance: FUROSEMIDE
  13. LOPERAMIDE [Concomitant]
     Active Substance: LOPERAMIDE
  14. LOSARTAN [Concomitant]
     Active Substance: LOSARTAN
  15. MAGOX [Concomitant]
  16. MELATONIN [Concomitant]
     Active Substance: MELATONIN
  17. MELOXICAM [Concomitant]
     Active Substance: MELOXICAM
  18. METFORMIN [Concomitant]
     Active Substance: METFORMIN HYDROCHLORIDE
  19. NOVOLIN NOS [Concomitant]
     Active Substance: INSULIN HUMAN
  20. NYSTATIN [Concomitant]
     Active Substance: NYSTATIN
  21. OLANZAPINE [Concomitant]
     Active Substance: OLANZAPINE
  22. ONDANSETRON [Concomitant]
     Active Substance: ONDANSETRON
  23. OXYCODONE [Concomitant]
     Active Substance: OXYCODONE
  24. PERCOCET [Concomitant]
     Active Substance: ACETAMINOPHEN\OXYCODONE HYDROCHLORIDE
  25. VITAMIN D3 [Concomitant]
     Active Substance: CHOLECALCIFEROL

REACTIONS (4)
  - Nausea [None]
  - Vomiting [None]
  - Diarrhoea [None]
  - Therapy cessation [None]
